FAERS Safety Report 7556342-4 (Version None)
Quarter: 2011Q2

REPORT INFORMATION
  Report Type: 
  Country: None (occurrence: None)
  Receive Date: 20110620
  Receipt Date: 20110609
  Transmission Date: 20111010
  Serious: Yes (Hospitalization, Other)
  Sender: FDA-Public Use
  Company Number: US-JNJFOC-20110606142

PATIENT
  Sex: Female
  Weight: 56.7 kg

DRUGS (8)
  1. FENTANYL-100 [Suspect]
     Route: 062
     Dates: start: 20110607
  2. FENTANYL-100 [Suspect]
     Route: 062
     Dates: start: 20090101
  3. FENTANYL-100 [Suspect]
     Indication: BACK PAIN
     Route: 062
     Dates: end: 20110601
  4. FENTANYL-100 [Suspect]
     Route: 062
     Dates: start: 20090101, end: 20090101
  5. FENTANYL-100 [Suspect]
     Dosage: NDC: 0781-7240-55
     Route: 062
     Dates: start: 20110601, end: 20110607
  6. CYMBALTA [Concomitant]
     Indication: DEPRESSION
     Route: 048
  7. FENTANYL-100 [Suspect]
     Route: 062
  8. FENTANYL CITRATE [Suspect]
     Indication: BACK PAIN
     Route: 062
     Dates: start: 20110607

REACTIONS (15)
  - OVERDOSE [None]
  - DRUG INEFFECTIVE [None]
  - PAIN [None]
  - WRONG TECHNIQUE IN DRUG USAGE PROCESS [None]
  - PRODUCT QUALITY ISSUE [None]
  - HALLUCINATION [None]
  - MEMORY IMPAIRMENT [None]
  - INSOMNIA [None]
  - FEELING ABNORMAL [None]
  - ABASIA [None]
  - BACK DISORDER [None]
  - DYSPNOEA [None]
  - HALLUCINATION, VISUAL [None]
  - DYSSTASIA [None]
  - ABNORMAL BEHAVIOUR [None]
